FAERS Safety Report 11234056 (Version 1)
Quarter: 2015Q3

REPORT INFORMATION
  Report Type: Spontaneous
  Country: US (occurrence: US)
  Receive Date: 20150702
  Receipt Date: 20150702
  Transmission Date: 20151125
  Serious: Yes (Other)
  Sender: FDA-Public Use
  Company Number: US-CIPLA LTD.-2015US05108

PATIENT

DRUGS (3)
  1. LEVEPSY [Suspect]
     Active Substance: LEVETIRACETAM
     Indication: MENTAL DISABILITY
     Dosage: TAPERED FROM 1500 M G, QD TO 1250 MG, QD
     Route: 065
  2. TOPIRAMATE. [Suspect]
     Active Substance: TOPIRAMATE
     Indication: SEIZURE
     Route: 065
  3. LEVEPSY [Suspect]
     Active Substance: LEVETIRACETAM
     Indication: AUTISM SPECTRUM DISORDER

REACTIONS (3)
  - Seizure [Unknown]
  - Obsessive thoughts [Recovered/Resolved]
  - Drug ineffective [Unknown]

NARRATIVE: CASE EVENT DATE: 2004
